FAERS Safety Report 21823082 (Version 1)
Quarter: 2023Q1

REPORT INFORMATION
  Report Type: Spontaneous
  Country: AR (occurrence: AR)
  Receive Date: 20230105
  Receipt Date: 20230105
  Transmission Date: 20230418
  Serious: Yes (Life-Threatening, Hospitalization, Other)
  Sender: FDA-Public Use
  Company Number: AR-002147023-PHHY2012AR108534

PATIENT
  Sex: Female

DRUGS (11)
  1. TRILEPTAL [Suspect]
     Active Substance: OXCARBAZEPINE
     Indication: Epilepsy
     Dosage: 300 MG, QID
     Route: 048
     Dates: start: 20020828
  2. TRILEPTAL [Suspect]
     Active Substance: OXCARBAZEPINE
     Dosage: 300 MG, TID
     Route: 048
     Dates: start: 2003, end: 2009
  3. TRILEPTAL [Suspect]
     Active Substance: OXCARBAZEPINE
     Dosage: 2 DOSAGE FORM, BID (300 MG / 2 BOXES PER MONTH)
     Route: 048
     Dates: start: 20031228
  4. TRILEPTAL [Suspect]
     Active Substance: OXCARBAZEPINE
     Dosage: 4 DOSAGE FORM, BID (300 MG / 2 BOXES PER MONTH)
     Route: 048
     Dates: start: 20031228
  5. TRILEPTAL [Suspect]
     Active Substance: OXCARBAZEPINE
     Dosage: UNK
     Route: 048
     Dates: start: 2009
  6. TRILEPTAL [Suspect]
     Active Substance: OXCARBAZEPINE
     Dosage: UNK
     Route: 048
  7. TRILEPTAL [Suspect]
     Active Substance: OXCARBAZEPINE
     Dosage: ONE TABLET A DAY (300MG)
     Route: 048
  8. TRILEPTAL [Suspect]
     Active Substance: OXCARBAZEPINE
     Dosage: THREE TIMES A DAY (900MG)
     Route: 048
  9. TRILEPTAL [Suspect]
     Active Substance: OXCARBAZEPINE
     Dosage: UNK
     Route: 048
  10. TRILEPTAL [Suspect]
     Active Substance: OXCARBAZEPINE
     Dosage: 300 MG, QD
     Route: 048
     Dates: start: 2013, end: 201505
  11. TEGRETOL [Suspect]
     Active Substance: CARBAMAZEPINE
     Indication: Epilepsy
     Dosage: UNK (200 MG OR 300 MG, 2 DAILY (ONE IN THE MORNING AND ANOTHER ONE AT NIGHT)) STOPPED IN : 28-???-20
     Route: 048
     Dates: start: 20031220

REACTIONS (24)
  - Suicide attempt [Unknown]
  - Maternal exposure during pregnancy [Unknown]
  - Stress [Recovered/Resolved]
  - Premature delivery [Unknown]
  - Seizure [Recovered/Resolved]
  - Throat tightness [Unknown]
  - Fear [Recovered/Resolved]
  - Aura [Unknown]
  - Feeling of despair [Recovering/Resolving]
  - Uterine contractions during pregnancy [Recovered/Resolved]
  - Hormone level abnormal [Recovered/Resolved]
  - Panic attack [Unknown]
  - Weight gain poor [Unknown]
  - Unintended pregnancy [Unknown]
  - Tooth loss [Not Recovered/Not Resolved]
  - Obsessive-compulsive disorder [Unknown]
  - Amnesia [Recovered/Resolved]
  - Pruritus [Recovering/Resolving]
  - Memory impairment [Unknown]
  - Depression [Unknown]
  - Malaise [Unknown]
  - Anxiety [Unknown]
  - Alopecia [Unknown]
  - Maternal exposure during breast feeding [Unknown]

NARRATIVE: CASE EVENT DATE: 20120101
